FAERS Safety Report 12912945 (Version 3)
Quarter: 2017Q1

REPORT INFORMATION
  Report Type: Report from Study
  Country: HU (occurrence: HU)
  Receive Date: 20161104
  Receipt Date: 20170104
  Transmission Date: 20170428
  Serious: Yes (Death, Life-Threatening, Other)
  Sender: FDA-Public Use
  Company Number: HU-PFIZER INC-2016414754

PATIENT
  Age: 64 Year
  Sex: Female
  Weight: 77 kg

DRUGS (3)
  1. ONKOTRON [Suspect]
     Active Substance: MITOXANTRONE HYDROCHLORIDE
     Indication: ACUTE MYELOID LEUKAEMIA
     Dosage: 18 MG, 1X/DAY
     Route: 042
     Dates: start: 20160809, end: 20160813
  2. CYTOSAR [Suspect]
     Active Substance: CYTARABINE
     Indication: ACUTE MYELOID LEUKAEMIA
     Dosage: 1800 MG, 2X/DAY
     Route: 042
     Dates: start: 20160809, end: 20160814
  3. MYLOTARG [Suspect]
     Active Substance: GEMTUZUMAB OZOGAMICIN
     Indication: ACUTE MYELOID LEUKAEMIA
     Dosage: 5 MG, 1X/DAY, ON DAYS 1,  4,  7 (INFUSION)
     Route: 042
     Dates: start: 20160809, end: 20160815

REACTIONS (2)
  - Histiocytosis haematophagic [Recovering/Resolving]
  - Aspergillus infection [Fatal]

NARRATIVE: CASE EVENT DATE: 20160823
